FAERS Safety Report 6007928-X (Version None)
Quarter: 2008Q4

REPORT INFORMATION
  Report Type: 
  Country: None (occurrence: None)
  Receive Date: 20081217
  Receipt Date: 20080728
  Transmission Date: 20090506
  Serious: No
  Sender: FDA-Public Use
  Company Number: US-ASTRAZENECA-2008UW11858

PATIENT
  Age: 48 Year
  Sex: Male

DRUGS (3)
  1. CRESTOR [Suspect]
     Route: 048
     Dates: start: 20080501, end: 20080601
  2. CRESTOR [Suspect]
     Route: 048
     Dates: start: 20080701
  3. COSAMINE DS [Concomitant]

REACTIONS (1)
  - MUSCLE SPASMS [None]
